FAERS Safety Report 7357919-1 (Version None)
Quarter: 2011Q1

REPORT INFORMATION
  Report Type: 
  Country: None (occurrence: None)
  Receive Date: 20110317
  Receipt Date: 20110308
  Transmission Date: 20110831
  Serious: Yes (Hospitalization)
  Sender: FDA-Public Use
  Company Number: US-SANOFI-AVENTIS-2011SA009225

PATIENT
  Age: 64 Year
  Sex: Female
  Weight: 79.09 kg

DRUGS (6)
  1. DABIGATRAN ETEXILATE [Suspect]
     Route: 065
  2. MULTAQ [Suspect]
     Indication: ATRIAL FIBRILLATION
     Route: 048
     Dates: start: 20110126, end: 20110128
  3. LISINOPRIL [Concomitant]
  4. MULTI-VITAMINS [Concomitant]
  5. PROGESTERONE [Concomitant]
  6. ESTROGENS CONJUGATED [Concomitant]

REACTIONS (12)
  - AORTIC ARTERIOSCLEROSIS [None]
  - INTERNATIONAL NORMALISED RATIO INCREASED [None]
  - DEHYDRATION [None]
  - HYPOTENSION [None]
  - LEFT ATRIAL DILATATION [None]
  - COAGULOPATHY [None]
  - HYPOTHERMIA [None]
  - DRUG INTERACTION [None]
  - MITRAL VALVE INCOMPETENCE [None]
  - PROTHROMBIN LEVEL ABNORMAL [None]
  - ATRIAL FIBRILLATION [None]
  - ACTIVATED PARTIAL THROMBOPLASTIN TIME PROLONGED [None]
